FAERS Safety Report 4593807-1 (Version None)
Quarter: 2005Q1

REPORT INFORMATION
  Report Type: 
  Country: None (occurrence: None)
  Receive Date: 20050301
  Receipt Date: 20040831
  Transmission Date: 20050727
  Serious: Yes (Hospitalization, Disabling, Other)
  Sender: FDA-Public Use
  Company Number: PHBS2004BE11516

PATIENT
  Age: 55 Year
  Sex: Male
  Weight: 72 kg

DRUGS (3)
  1. THALIDOMIDE [Concomitant]
     Indication: MULTIPLE MYELOMA
     Dosage: 400 MG/D
     Route: 065
     Dates: start: 20031002
  2. THALIDOMIDE [Concomitant]
     Dosage: UNK, UNK
     Route: 065
     Dates: end: 20041013
  3. ZOMETA [Suspect]
     Indication: MULTIPLE MYELOMA
     Dosage: 4 MG, QMO
     Route: 042
     Dates: start: 20021226, end: 20040826

REACTIONS (17)
  - ANGINA PECTORIS [None]
  - APATHY [None]
  - APTYALISM [None]
  - ASTHENIA [None]
  - BLOOD CREATININE INCREASED [None]
  - CHRONIC OBSTRUCTIVE AIRWAYS DISEASE EXACERBATED [None]
  - DEHYDRATION [None]
  - DISEASE RECURRENCE [None]
  - FATIGUE [None]
  - GINGIVAL DISORDER [None]
  - IMPAIRED HEALING [None]
  - MONONEUROPATHY [None]
  - ORAL PAIN [None]
  - OSTEOMYELITIS [None]
  - OSTEONECROSIS [None]
  - PLASTIC SURGERY [None]
  - TOOTH EXTRACTION [None]
